FAERS Safety Report 23625425 (Version 1)
Quarter: 2024Q1

REPORT INFORMATION
  Report Type: Spontaneous
  Country: PL (occurrence: None)
  Receive Date: 20240313
  Receipt Date: 20240313
  Transmission Date: 20240410
  Serious: Yes (Other)
  Sender: FDA-Public Use
  Company Number: PL-ROCHE-3521778

PATIENT
  Sex: Male

DRUGS (1)
  1. TECENTRIQ [Suspect]
     Active Substance: ATEZOLIZUMAB
     Indication: Non-small cell lung cancer
     Dosage: ON 22/JAN/2024, HE RECEIVED THE MOST RECENT DOSE OF (1680 MG) ATEZOLIZUMAB.
     Route: 065
     Dates: start: 20231019

REACTIONS (1)
  - Disease progression [Unknown]
